FAERS Safety Report 9679198 (Version 1)
Quarter: 2013Q4

REPORT INFORMATION
  Report Type: Spontaneous
  Country: GB (occurrence: None)
  Receive Date: 20131107
  Receipt Date: 20131107
  Transmission Date: 20140711
  Serious: Yes (Other)
  Sender: FDA-Public Use
  Company Number: AUR-APL-2013-09260

PATIENT
  Sex: Male

DRUGS (1)
  1. PAROXETINE (PAROXETINE) [Suspect]
     Indication: PRODUCT USED FOR UNKNOWN INDICATION

REACTIONS (1)
  - Tourette^s disorder [None]
